FAERS Safety Report 8589711-4 (Version None)
Quarter: 2012Q3

REPORT INFORMATION
  Report Type: 
  Country: None (occurrence: None)
  Receive Date: 20120813
  Receipt Date: 20120808
  Transmission Date: 20120928
  Serious: No
  Sender: FDA-Public Use
  Company Number: US-PFIZER INC-2012194229

PATIENT
  Age: 67 Year
  Sex: Female
  Weight: 90.703 kg

DRUGS (2)
  1. IBUPROFEN [Concomitant]
     Dosage: UNK, AS NEEDED
  2. CHANTIX [Suspect]
     Indication: SMOKING CESSATION THERAPY
     Dosage: UNK
     Dates: end: 20120101

REACTIONS (3)
  - BRONCHITIS [None]
  - CHRONIC OBSTRUCTIVE PULMONARY DISEASE [None]
  - ASTHMA [None]
